FAERS Safety Report 4455475-9 (Version None)
Quarter: 2004Q3

REPORT INFORMATION
  Report Type: 
  Country: None (occurrence: None)
  Receive Date: 20040917
  Receipt Date: 20040831
  Transmission Date: 20050211
  Serious: Yes (Disabling)
  Sender: FDA-Public Use
  Company Number: FR_040804659

PATIENT
  Age: 58 Year
  Sex: Male

DRUGS (3)
  1. CIALIS [Suspect]
     Indication: ERECTILE DYSFUNCTION
     Dates: start: 20040114, end: 20040317
  2. NOLVADEX [Concomitant]
  3. MODURETIC 5-50 [Concomitant]

REACTIONS (2)
  - CEREBRAL VENOUS THROMBOSIS [None]
  - DRUG INTERACTION [None]
